FAERS Safety Report 5872847-6 (Version None)
Quarter: 2008Q3

REPORT INFORMATION
  Report Type: 
  Country: None (occurrence: None)
  Receive Date: 20080905
  Receipt Date: 20080826
  Transmission Date: 20090109
  Serious: Yes (Death)
  Sender: FDA-Public Use
  Company Number: US-PFIZER INC-2008071322

PATIENT
  Age: 55 Year
  Sex: Male

DRUGS (4)
  1. LYRICA [Suspect]
     Indication: NEUROPATHY PERIPHERAL
  2. LYRICA [Suspect]
     Indication: BACK PAIN
  3. BETA BLOCKING AGENTS [Concomitant]
  4. ANTIHYPERTENSIVES [Concomitant]

REACTIONS (1)
  - DEATH [None]
